FAERS Safety Report 7220894-4 (Version None)
Quarter: 2011Q1

REPORT INFORMATION
  Report Type: 
  Country: None (occurrence: None)
  Receive Date: 20110112
  Receipt Date: 20101008
  Transmission Date: 20110831
  Serious: No
  Sender: FDA-Public Use
  Company Number: A0885672A

PATIENT
  Age: 60 Year
  Sex: Female

DRUGS (1)
  1. JALYN [Suspect]

REACTIONS (1)
  - VULVOVAGINAL DISCOMFORT [None]
